FAERS Safety Report 5529700-7 (Version None)
Quarter: 2007Q4

REPORT INFORMATION
  Report Type: 
  Country: None (occurrence: None)
  Receive Date: 20071129
  Receipt Date: 20071121
  Transmission Date: 20080405
  Serious: Yes (Hospitalization)
  Sender: FDA-Public Use
  Company Number: SE-PFIZER INC-2007098376

PATIENT
  Sex: Female

DRUGS (19)
  1. PREDNISOLONE [Suspect]
     Indication: RHEUMATOID ARTHRITIS
     Route: 048
  2. ACETYLSALICYLIC ACID SRT [Suspect]
     Indication: ATRIAL FIBRILLATION
     Route: 048
     Dates: start: 20060101, end: 20070905
  3. PYRIDOXINE HYDROCHLORIDE [Concomitant]
  4. KALCIPOS-D [Concomitant]
  5. OMEPRAZOLE [Concomitant]
  6. DURAGESIC-100 [Concomitant]
  7. SIMVASTATIN [Concomitant]
  8. NITROMEX [Concomitant]
  9. XYLOCAIN [Concomitant]
  10. ACETAMINOPHEN [Concomitant]
  11. IMPUGAN [Concomitant]
  12. AMILORIDE HYDROCHLORIDE [Concomitant]
  13. DILTIAZEM HYDROCHLORIDE [Concomitant]
  14. ATROVENT [Concomitant]
  15. LACTULOSE [Concomitant]
  16. IMOVANE [Concomitant]
  17. ACETYLCYSTEINE [Concomitant]
  18. KETOBEMIDONE HYDROCHLORIDE [Concomitant]
  19. SODIUM PICOSULFATE [Concomitant]

REACTIONS (1)
  - EPISTAXIS [None]
